FAERS Safety Report 8245218 (Version 13)
Quarter: 2013Q3

REPORT INFORMATION
  Report Type: Report from Study
  Country: JP (occurrence: JP)
  Receive Date: 20111115
  Receipt Date: 20130802
  Transmission Date: 20140515
  Serious: Yes (Life-Threatening, Hospitalization, Other)
  Sender: FDA-Public Use
  Company Number: JP-BRISTOL-MYERS SQUIBB COMPANY-16231631

PATIENT
  Age: 26 Year
  Sex: Female
  Weight: 59.5 kg

DRUGS (9)
  1. BLINDED: ARIPIPRAZOLE IM DEPOT [Suspect]
     Indication: SCHIZOPHRENIA
     Route: 030
     Dates: start: 20110824, end: 20111018
  2. BLINDED: ABILIFY TABS [Suspect]
     Indication: SCHIZOPHRENIA
     Dosage: 31MAY-9JUN=10D,10JUN-31OCT=144D,24MG1NOV-3NOV=3D,18MG4NOV-10NOV=7D,12MG11NOV-26NOV=16D
     Route: 048
     Dates: start: 20110531, end: 20130610
  3. BLINDED: PLACEBO [Suspect]
     Indication: SCHIZOPHRENIA
     Dates: start: 20110824, end: 20111018
  4. ABILIFY TABS [Suspect]
     Indication: SCHIZOPHRENIA
     Route: 048
     Dates: start: 20111101, end: 20130610
  5. RISPERDAL CONSTA [Concomitant]
     Dosage: TAB,ORAL SOLN 0.1% 25MG AS NEEDED 7NOV11-ONG,INCRE TO 37.5MG ON 22DEC11,50MG:05JAN12,2ML:01,02FEB12.
     Route: 048
     Dates: start: 20111104
  6. AKINETON [Concomitant]
     Dosage: TAB
     Dates: start: 20111107
  7. QUETIAPINE [Concomitant]
  8. PALIPERIDONE [Concomitant]
  9. FLUNITRAZEPAM [Concomitant]

REACTIONS (5)
  - Suicide attempt [Recovered/Resolved]
  - Schizophrenia [Recovering/Resolving]
  - Pelvic fracture [Recovered/Resolved]
  - Splenic injury [Recovered/Resolved]
  - Pneumothorax [Recovered/Resolved]
